FAERS Safety Report 23492911 (Version 1)
Quarter: 2024Q1

REPORT INFORMATION
  Report Type: Report from Study
  Country: US (occurrence: US)
  Receive Date: 20240207
  Receipt Date: 20240207
  Transmission Date: 20240410
  Serious: Yes (Death, Other)
  Sender: FDA-Public Use
  Company Number: US-GILEAD-2024-0660788

PATIENT
  Age: 59 Year
  Sex: Female

DRUGS (1)
  1. SACITUZUMAB GOVITECAN-HZIY [Suspect]
     Active Substance: SACITUZUMAB GOVITECAN-HZIY
     Indication: Triple negative breast cancer
     Dosage: 8 MG/KG, (A TOTAL OF ONE OR TWO DOSES)
     Route: 042
     Dates: start: 20231015, end: 20231105

REACTIONS (1)
  - Disease progression [Fatal]
